FAERS Safety Report 7427545-4 (Version None)
Quarter: 2011Q2

REPORT INFORMATION
  Report Type: 
  Country: None (occurrence: None)
  Receive Date: 20110420
  Receipt Date: 20110414
  Transmission Date: 20111010
  Serious: Yes (Hospitalization, Disabling)
  Sender: FDA-Public Use
  Company Number: US-MERCK-1104USA00051

PATIENT
  Sex: Female

DRUGS (4)
  1. COZAAR [Concomitant]
     Route: 065
  2. ACETAMINOPHEN AND CAFFEINE [Concomitant]
     Route: 065
  3. ZOLOFT [Concomitant]
     Route: 065
  4. JANUMET [Suspect]
     Indication: TYPE 2 DIABETES MELLITUS
     Route: 048

REACTIONS (1)
  - THROMBOSIS [None]
